FAERS Safety Report 13271166 (Version 1)
Quarter: 2017Q1

REPORT INFORMATION
  Report Type: Spontaneous
  Country: FR (occurrence: FR)
  Receive Date: 20170226
  Receipt Date: 20170226
  Transmission Date: 20170428
  Serious: Yes (Other)
  Sender: FDA-Public Use
  Company Number: PHHY2017FR024923

PATIENT
  Age: 70 Year
  Sex: Male

DRUGS (1)
  1. PAZOPANIB [Suspect]
     Active Substance: PAZOPANIB
     Indication: RENAL CANCER METASTATIC
     Dosage: UNK
     Route: 065

REACTIONS (5)
  - Pancytopenia [Unknown]
  - Bone marrow infiltration [Unknown]
  - Malnutrition [Unknown]
  - Treatment failure [Unknown]
  - Sepsis [Unknown]
